FAERS Safety Report 5294465-3 (Version None)
Quarter: 2007Q2

REPORT INFORMATION
  Report Type: 
  Country: None (occurrence: None)
  Receive Date: 20070412
  Receipt Date: 20070402
  Transmission Date: 20071010
  Serious: Yes (Hospitalization, Disabling)
  Sender: FDA-Public Use
  Company Number: FR-AMGEN-UK201244

PATIENT
  Age: 70 Year
  Sex: Male
  Weight: 105 kg

DRUGS (3)
  1. ARANESP [Suspect]
     Indication: ANAEMIA OF MALIGNANT DISEASE
     Route: 058
     Dates: start: 20061014
  2. DEXAMETHASONE [Concomitant]
     Route: 042
     Dates: start: 20060216, end: 20061107
  3. THALIDOMIDE [Concomitant]
     Route: 048
     Dates: start: 20060216, end: 20061107

REACTIONS (6)
  - BACK PAIN [None]
  - CEREBROVASCULAR ACCIDENT [None]
  - FALL [None]
  - HEMIPARESIS [None]
  - JOINT EFFUSION [None]
  - PERIPHERAL EMBOLISM [None]
